FAERS Safety Report 16009093 (Version 1)
Quarter: 2019Q1

REPORT INFORMATION
  Report Type: Report from Study
  Country: IT (occurrence: IT)
  Receive Date: 20190226
  Receipt Date: 20190226
  Transmission Date: 20190418
  Serious: Yes (Hospitalization)
  Sender: FDA-Public Use
  Company Number: IT-DSJP-DSE-2019-107000

PATIENT

DRUGS (10)
  1. LIXIANA [Suspect]
     Active Substance: EDOXABAN TOSYLATE
     Dosage: 30 MG, QD
     Route: 048
  2. RAMIPRIL. [Concomitant]
     Active Substance: RAMIPRIL
  3. QUETIAPINE. [Concomitant]
     Active Substance: QUETIAPINE
  4. ALLOPURINOL. [Concomitant]
     Active Substance: ALLOPURINOL
  5. MOVICOL [Concomitant]
     Active Substance: POLYETHYLENE GLYCOL 3350\POTASSIUM CHLORIDE\SODIUM BICARBONATE\SODIUM CHLORIDE
  6. FUROSEMIDE. [Concomitant]
     Active Substance: FUROSEMIDE
  7. OMEPRAZOLE. [Concomitant]
     Active Substance: OMEPRAZOLE
  8. VIMPAT [Concomitant]
     Active Substance: LACOSAMIDE
  9. DIAZEPAM. [Concomitant]
     Active Substance: DIAZEPAM
  10. DEPAKIN [Concomitant]
     Active Substance: VALPROATE SODIUM

REACTIONS (2)
  - Vomiting [Not Recovered/Not Resolved]
  - Haematemesis [Not Recovered/Not Resolved]

NARRATIVE: CASE EVENT DATE: 20190117
